FAERS Safety Report 16343322 (Version 1)
Quarter: 2019Q2

REPORT INFORMATION
  Report Type: Spontaneous
  Country: US (occurrence: US)
  Receive Date: 20190522
  Receipt Date: 20190522
  Transmission Date: 20190711
  Serious: Yes (Hospitalization)
  Sender: FDA-Public Use
  Company Number: US-PFIZER INC-2019214098

PATIENT
  Age: 47 Year
  Sex: Female
  Weight: 103 kg

DRUGS (2)
  1. VFEND [Suspect]
     Active Substance: VORICONAZOLE
     Indication: SARCOIDOSIS
     Dosage: UNK (2-3 TIMES PER DAY   )
  2. VFEND [Suspect]
     Active Substance: VORICONAZOLE
     Indication: ASPERGILLUS INFECTION
     Dosage: 200 MG, 2X/DAY
     Route: 048

REACTIONS (4)
  - Bronchopulmonary aspergillosis [Unknown]
  - Pneumonia [Unknown]
  - Sepsis [Unknown]
  - Off label use [Unknown]
